FAERS Safety Report 23486194 (Version 1)
Quarter: 2024Q1

REPORT INFORMATION
  Report Type: Other
  Country: US (occurrence: None)
  Receive Date: 20240206
  Receipt Date: 20240206
  Transmission Date: 20240410
  Serious: Yes (Other)
  Sender: FDA-Public Use
  Company Number: US-ROCHE-3498947

PATIENT
  Age: 61 Year
  Sex: Female
  Weight: 79.45 kg

DRUGS (9)
  1. OCREVUS [Suspect]
     Active Substance: OCRELIZUMAB
     Indication: Multiple sclerosis
     Route: 042
     Dates: start: 20191009
  2. CARVEDILOL [Concomitant]
     Active Substance: CARVEDILOL
  3. AMLODIPINE [Concomitant]
     Active Substance: AMLODIPINE BESYLATE
  4. HYDROCHLOROTHIAZIDE [Concomitant]
     Active Substance: HYDROCHLOROTHIAZIDE
  5. TRULANCE [Concomitant]
     Active Substance: PLECANATIDE
  6. AMBIEN [Concomitant]
     Active Substance: ZOLPIDEM TARTRATE
  7. NIFEDIPINE [Concomitant]
     Active Substance: NIFEDIPINE
  8. ISOSORBIDE MONONITRATE [Concomitant]
     Active Substance: ISOSORBIDE MONONITRATE
  9. PREGABALIN [Concomitant]
     Active Substance: PREGABALIN

REACTIONS (6)
  - Herpes zoster [Not Recovered/Not Resolved]
  - Neuropathy peripheral [Not Recovered/Not Resolved]
  - Rash [Recovered/Resolved]
  - Back pain [Not Recovered/Not Resolved]
  - Fall [Unknown]
  - Wrist fracture [Not Recovered/Not Resolved]

NARRATIVE: CASE EVENT DATE: 20220601
